FAERS Safety Report 8800532 (Version 1)
Quarter: 2012Q4

REPORT INFORMATION
  Report Type: 
  Country: DK (occurrence: DK)
  Receive Date: 20120921
  Receipt Date: 20120921
  Transmission Date: 20130627
  Serious: Yes (Other)
  Sender: FDA-Public Use
  Company Number: DK-MUTUAL PHARMACEUTICAL COMPANY, INC.-IBPF20120003

PATIENT
  Sex: Female
  Weight: 45 kg

DRUGS (3)
  1. IBUPROFEN [Suspect]
     Indication: ARTHRITIS
     Route: 065
     Dates: start: 201204, end: 20120816
  2. TRIMOPAN (TRIMETHOPRIM) [Concomitant]
     Indication: CYSTITIS
  3. KODEIN (CODEINE) [Concomitant]

REACTIONS (1)
  - Renal failure [None]
